FAERS Safety Report 8773963 (Version 1)
Quarter: 2012Q4

REPORT INFORMATION
  Report Type: 
  Country: US (occurrence: US)
  Receive Date: 20120907
  Receipt Date: 20120907
  Transmission Date: 20130627
  Serious: Yes (Other)
  Sender: FDA-Public Use
  Company Number: US-ELI_LILLY_AND_COMPANY-US201208009027

PATIENT
  Age: 55 Year
  Sex: Female

DRUGS (3)
  1. OLANZAPINE [Suspect]
     Dosage: UNK
  2. VENLAFAXINE [Concomitant]
     Dosage: 225 mg, qd
  3. GABAPENTIN [Concomitant]

REACTIONS (2)
  - Suicidal ideation [Recovered/Resolved]
  - Anxiety [Recovering/Resolving]
